FAERS Safety Report 8421079-6 (Version None)
Quarter: 2012Q2

REPORT INFORMATION
  Report Type: 
  Country: None (occurrence: None)
  Receive Date: 20120604
  Receipt Date: 20120604
  Transmission Date: 20120825
  Serious: Yes (Death, Other)
  Sender: FDA-Public Use
  Company Number: None

PATIENT
  Sex: Female
  Weight: 74.8435 kg

DRUGS (1)
  1. REMICADE [Suspect]
     Indication: RHEUMATOID ARTHRITIS
     Dosage: BASED ON MY WEIGHT EVERY EIGHT WEEKS IV DRIP
     Route: 041
     Dates: start: 20100701, end: 20111227

REACTIONS (2)
  - SCAB [None]
  - PSORIASIS [None]
